FAERS Safety Report 8154845-5 (Version None)
Quarter: 2012Q1

REPORT INFORMATION
  Report Type: 
  Country: None (occurrence: None)
  Receive Date: 20120221
  Receipt Date: 20120213
  Transmission Date: 20120608
  Serious: Yes (Other)
  Sender: FDA-Public Use
  Company Number: PHHY2012BR013136

PATIENT
  Sex: Female

DRUGS (2)
  1. EXFORGE HCT [Suspect]
     Dosage: ONE TABLET (160/5/12.5MG) IN THE MORNING AND ONE AT NIGHT
  2. EXFORGE HCT [Suspect]
     Dosage: ONE TABLET (160/5/12.5 MG) A DAY

REACTIONS (5)
  - PAIN [None]
  - FALL [None]
  - DIABETES MELLITUS [None]
  - BLOOD PRESSURE INCREASED [None]
  - CARDIAC DISORDER [None]
